FAERS Safety Report 17982591 (Version 1)
Quarter: 2020Q3

REPORT INFORMATION
  Report Type: Spontaneous
  Country: US (occurrence: US)
  Receive Date: 20200703
  Receipt Date: 20200703
  Transmission Date: 20201103
  Serious: No
  Sender: FDA-Public Use
  Company Number: None

PATIENT
  Age: 78 Year
  Sex: Female

DRUGS (1)
  1. LEVOTHYROXINE SODIUM. [Suspect]
     Active Substance: LEVOTHYROXINE SODIUM
     Indication: HYPOTHYROIDISM
     Route: 048
     Dates: start: 20200701

REACTIONS (8)
  - Impaired driving ability [None]
  - Therapy change [None]
  - Feeling drunk [None]
  - Dizziness [None]
  - Blood pressure decreased [None]
  - Fatigue [None]
  - Gait inability [None]
  - Product substitution issue [None]

NARRATIVE: CASE EVENT DATE: 20200701
